FAERS Safety Report 13877361 (Version 2)
Quarter: 2017Q3

REPORT INFORMATION
  Report Type: Spontaneous
  Country: US (occurrence: US)
  Receive Date: 20170817
  Receipt Date: 20170906
  Transmission Date: 20171127
  Serious: Yes (Other)
  Sender: FDA-Public Use
  Company Number: US-ASTRAZENECA-2017SE82663

PATIENT
  Age: 24006 Day
  Sex: Male
  Weight: 100.7 kg

DRUGS (6)
  1. LIPITOR [Concomitant]
     Active Substance: ATORVASTATIN CALCIUM
     Indication: HYPERLIPIDAEMIA
     Route: 048
     Dates: start: 20170804
  2. ASPIRIN. [Concomitant]
     Active Substance: ASPIRIN
     Route: 048
     Dates: start: 20170804
  3. VIAGRA [Concomitant]
     Active Substance: SILDENAFIL CITRATE
     Dosage: 1/2-1 TABLETS DAILY
     Route: 048
     Dates: start: 20170301
  4. BRILINTA [Suspect]
     Active Substance: TICAGRELOR
     Indication: STENT PLACEMENT
     Route: 048
     Dates: start: 20170803, end: 20170809
  5. PLAVIX [Concomitant]
     Active Substance: CLOPIDOGREL BISULFATE
     Route: 048
  6. LOPRESSOR [Concomitant]
     Active Substance: METOPROLOL TARTRATE
     Indication: HYPERTENSION
     Route: 048
     Dates: start: 20170301

REACTIONS (12)
  - Cold sweat [Unknown]
  - Insomnia [Unknown]
  - Post procedural haemorrhage [Recovered/Resolved]
  - Diplopia [Unknown]
  - Malaise [Unknown]
  - Rash [Unknown]
  - Pyrexia [Unknown]
  - Asthenia [Unknown]
  - Post procedural haematoma [Recovered/Resolved]
  - Swelling face [Unknown]
  - Angioedema [Recovering/Resolving]
  - Eye swelling [Unknown]

NARRATIVE: CASE EVENT DATE: 20170803
